FAERS Safety Report 10385036 (Version 1)
Quarter: 2014Q3

REPORT INFORMATION
  Report Type: Spontaneous
  Country: US (occurrence: None)
  Receive Date: 20140813
  Receipt Date: 20140813
  Transmission Date: 20150326
  Serious: Yes (Other)
  Sender: FDA-Public Use
  Company Number: None

PATIENT
  Age: 16 Year
  Sex: Male
  Weight: 65.77 kg

DRUGS (1)
  1. NOVOCAIN [Suspect]
     Active Substance: PROCAINE HYDROCHLORIDE
     Indication: CRIME
     Dosage: INJECTION  ONCE
     Dates: start: 20140724, end: 20140724

REACTIONS (1)
  - Alopecia [None]

NARRATIVE: CASE EVENT DATE: 20140724
